FAERS Safety Report 10794652 (Version 2)
Quarter: 2015Q1

REPORT INFORMATION
  Report Type: Report from Study
  Country: JP (occurrence: JP)
  Receive Date: 20150213
  Receipt Date: 20150217
  Transmission Date: 20150721
  Serious: Yes (Death)
  Sender: FDA-Public Use
  Company Number: JP-SA-2015SA017844

PATIENT
  Age: 79 Year
  Sex: Male

DRUGS (3)
  1. FLUOROURACIL. [Suspect]
     Active Substance: FLUOROURACIL
     Indication: OESOPHAGEAL CARCINOMA
     Dosage: DAY 1-5, Q3W
     Route: 065
     Dates: start: 20140331, end: 20140404
  2. TAXOTERE [Suspect]
     Active Substance: DOCETAXEL
     Indication: OESOPHAGEAL CARCINOMA
     Dosage: DAY 1 OF CYCLE
     Route: 042
     Dates: start: 20140331, end: 20140331
  3. CISPLATIN. [Suspect]
     Active Substance: CISPLATIN
     Indication: OESOPHAGEAL CARCINOMA
     Dosage: DAY 1
     Route: 065
     Dates: start: 20140331, end: 20140331

REACTIONS (8)
  - Blood potassium increased [Fatal]
  - Diarrhoea [Fatal]
  - Body temperature increased [Fatal]
  - Blood sodium increased [Fatal]
  - Cardio-respiratory arrest [None]
  - Enterocolitis [Fatal]
  - Blood chloride increased [Fatal]
  - Febrile neutropenia [Fatal]

NARRATIVE: CASE EVENT DATE: 20140403
